FAERS Safety Report 6567035-4 (Version None)
Quarter: 2010Q1

REPORT INFORMATION
  Report Type: 
  Country: None (occurrence: None)
  Receive Date: 20100127
  Receipt Date: 20100121
  Transmission Date: 20100710
  Serious: Yes (Other)
  Sender: FDA-Public Use
  Company Number: 2009SP038035

PATIENT
  Age: 29 Year
  Sex: Female
  Weight: 64 kg

DRUGS (4)
  1. IMPLANON [Suspect]
     Indication: CONTRACEPTION
     Dates: start: 20091001
  2. IMPLANON [Suspect]
  3. ZOLOFT [Concomitant]
  4. SEROQUEL [Concomitant]

REACTIONS (4)
  - FATIGUE [None]
  - NERVOUSNESS [None]
  - SUICIDAL IDEATION [None]
  - VAGINAL HAEMORRHAGE [None]
